FAERS Safety Report 17509651 (Version 1)
Quarter: 2020Q1

REPORT INFORMATION
  Report Type: Report from Study
  Country: US (occurrence: US)
  Receive Date: 20200306
  Receipt Date: 20200306
  Transmission Date: 20200409
  Serious: Yes (Death)
  Sender: FDA-Public Use
  Company Number: US-ASTRAZENECA-2020SE32509

PATIENT
  Age: 21808 Day
  Sex: Female

DRUGS (1)
  1. LYNPARZA [Suspect]
     Active Substance: OLAPARIB
     Dosage: 200 MG, 2 TABLETS TWICE A DAY FOR 7 DAYS, FOLLOWED BY 14 DAYS OFF EVERY 21 DAYS.
     Route: 048
     Dates: start: 20190923

REACTIONS (1)
  - Death [Fatal]

NARRATIVE: CASE EVENT DATE: 20200228
